FAERS Safety Report 9796104 (Version 1)
Quarter: 2014Q1

REPORT INFORMATION
  Report Type: Report from Study
  Country: CA (occurrence: CA)
  Receive Date: 20140103
  Receipt Date: 20140103
  Transmission Date: 20141002
  Serious: Yes (Other)
  Sender: FDA-Public Use
  Company Number: CA-JNJFOC-20131217400

PATIENT
  Sex: Female
  Weight: 56.25 kg

DRUGS (1)
  1. REMICADE [Suspect]
     Indication: PRODUCT USED FOR UNKNOWN INDICATION
     Route: 042
     Dates: end: 201303

REACTIONS (3)
  - Amnesia [Unknown]
  - Balance disorder [Unknown]
  - Hypersensitivity [Unknown]
